FAERS Safety Report 17695012 (Version 1)
Quarter: 2020Q2

REPORT INFORMATION
  Report Type: Spontaneous
  Country: PL (occurrence: PL)
  Receive Date: 20200422
  Receipt Date: 20200422
  Transmission Date: 20200714
  Serious: Yes (Hospitalization)
  Sender: FDA-Public Use
  Company Number: PL-AMGEN-POLSP2020061639

PATIENT
  Age: 28 Year
  Sex: Female

DRUGS (3)
  1. MESALAZINE [Suspect]
     Active Substance: MESALAMINE
     Indication: CROHN^S DISEASE
     Dosage: UNK
     Route: 065
     Dates: start: 2017
  2. ADALIMUMAB [Suspect]
     Active Substance: ADALIMUMAB
     Indication: CROHN^S DISEASE
     Dosage: UNK
     Route: 065
  3. COTRIMOXAZOLE [Concomitant]
     Active Substance: SULFAMETHOXAZOLE\TRIMETHOPRIM
     Indication: CROHN^S DISEASE
     Dosage: UNK
     Dates: start: 2017

REACTIONS (5)
  - Fatigue [Unknown]
  - Dizziness [Unknown]
  - Asthenia [Unknown]
  - Balance disorder [Unknown]
  - Interstitial lung disease [Recovering/Resolving]
